FAERS Safety Report 16353882 (Version 1)
Quarter: 2019Q2

REPORT INFORMATION
  Report Type: Spontaneous
  Country: JP (occurrence: JP)
  Receive Date: 20190524
  Receipt Date: 20190524
  Transmission Date: 20190711
  Serious: Yes (Other)
  Sender: FDA-Public Use
  Company Number: JP-PFIZER INC-2019212570

PATIENT
  Age: 11 Year
  Sex: Female

DRUGS (1)
  1. METHOTREXATE 1000MG [Suspect]
     Active Substance: METHOTREXATE
     Indication: OSTEOSARCOMA
     Dosage: 16 G, EVERY 3 WEEKS
     Route: 041
     Dates: start: 20190430

REACTIONS (1)
  - Impaired gastric emptying [Recovered/Resolved]
